FAERS Safety Report 6113445-9 (Version None)
Quarter: 2009Q1

REPORT INFORMATION
  Report Type: 
  Country: None (occurrence: None)
  Receive Date: 20090312
  Receipt Date: 20090304
  Transmission Date: 20090719
  Serious: Yes (Hospitalization)
  Sender: FDA-Public Use
  Company Number: PH-AVENTIS-200912220GDDC

PATIENT
  Age: 76 Year
  Sex: Male

DRUGS (3)
  1. LANTUS [Suspect]
     Route: 058
     Dates: start: 20081118
  2. METFORMIN HCL [Concomitant]
     Dosage: DOSE: 1-1-1
  3. UNKNOWN DRUG [Concomitant]

REACTIONS (1)
  - CONSTIPATION [None]
